FAERS Safety Report 8240849-0 (Version None)
Quarter: 2012Q1

REPORT INFORMATION
  Report Type: 
  Country: None (occurrence: None)
  Receive Date: 20120328
  Receipt Date: 20120319
  Transmission Date: 20120608
  Serious: Yes (Hospitalization)
  Sender: FDA-Public Use
  Company Number: BR-ASTRAZENECA-2012SE19155

PATIENT
  Age: 62 Year
  Sex: Male
  Weight: 35.4 kg

DRUGS (6)
  1. LEVOTHYROXINE SODIUM [Concomitant]
     Route: 048
  2. DIOVAN [Concomitant]
     Dosage: 160/5 MGS
     Route: 048
  3. CRESTOR [Suspect]
     Indication: BLOOD CHOLESTEROL INCREASED
     Route: 048
  4. BRILINTA [Suspect]
     Indication: ARTERIAL OCCLUSIVE DISEASE
     Route: 048
     Dates: start: 20120101
  5. ASPIRIN PREVENT [Concomitant]
     Route: 048
  6. AMLODIPINE [Concomitant]
     Route: 048

REACTIONS (3)
  - MYOCARDIAL INFARCTION [None]
  - OFF LABEL USE [None]
  - ARTERIAL OCCLUSIVE DISEASE [None]
